FAERS Safety Report 10526409 (Version 2)
Quarter: 2014Q4

REPORT INFORMATION
  Report Type: Spontaneous
  Country: US (occurrence: US)
  Receive Date: 20141020
  Receipt Date: 20141120
  Transmission Date: 20150528
  Serious: Yes (Other)
  Sender: FDA-Public Use
  Company Number: US-AMGEN-USASP2014078688

PATIENT
  Age: 71 Year
  Sex: Female
  Weight: 63.55 kg

DRUGS (1)
  1. XGEVA [Suspect]
     Active Substance: DENOSUMAB
     Indication: PRODUCT USED FOR UNKNOWN INDICATION
     Dosage: 120 MG, QMO
     Route: 058
     Dates: start: 20130813, end: 20140916

REACTIONS (2)
  - Arthralgia [Unknown]
  - Bone marrow granuloma [Unknown]

NARRATIVE: CASE EVENT DATE: 20140210
